FAERS Safety Report 19311916 (Version 1)
Quarter: 2021Q2

REPORT INFORMATION
  Report Type: Spontaneous
  Country: GB (occurrence: GB)
  Receive Date: 20210527
  Receipt Date: 20210527
  Transmission Date: 20210717
  Serious: Yes (Other)
  Sender: FDA-Public Use
  Company Number: GB-SUN PHARMACEUTICAL INDUSTRIES LTD-2021RR-298367

PATIENT
  Sex: Female

DRUGS (5)
  1. ESTRIOL [Concomitant]
     Active Substance: ESTRIOL
     Indication: ILL-DEFINED DISORDER
     Dosage: UNK
     Route: 065
  2. SERTRALINE [Suspect]
     Active Substance: SERTRALINE HYDROCHLORIDE
     Indication: ANXIETY
     Dosage: 50MG, UNK
     Route: 048
     Dates: start: 20210325, end: 20210419
  3. OESTROGEL [Concomitant]
     Active Substance: ESTRADIOL
     Indication: ILL-DEFINED DISORDER
     Dosage: UNK
     Route: 065
  4. PROGESTERON [Concomitant]
     Active Substance: PROGESTERONE
     Indication: ILL-DEFINED DISORDER
     Dosage: UNK
     Route: 065
  5. SUMATRIPTAN. [Concomitant]
     Active Substance: SUMATRIPTAN
     Indication: ILL-DEFINED DISORDER
     Dosage: UNK
     Route: 065

REACTIONS (7)
  - Insomnia [Recovered/Resolved]
  - Gastrooesophageal reflux disease [Recovered/Resolved]
  - Abdominal pain upper [Recovered/Resolved]
  - Depression suicidal [Recovered/Resolved]
  - Somnolence [Recovered/Resolved]
  - Clumsiness [Recovered/Resolved]
  - Taste disorder [Recovered/Resolved]
